FAERS Safety Report 4353022-3 (Version None)
Quarter: 2004Q2

REPORT INFORMATION
  Report Type: 
  Country: None (occurrence: None)
  Receive Date: 20040429
  Receipt Date: 20040414
  Transmission Date: 20050107
  Serious: Yes (Disabling, Other)
  Sender: FDA-Public Use
  Company Number: 04-00021G

PATIENT
  Age: 22 Year
  Sex: Female

DRUGS (1)
  1. LOESTRIN 1.5/30 [Suspect]
     Indication: CONTRACEPTION
     Dosage: 20/1000UG, QD, ORAL
     Route: 048
     Dates: start: 19960403, end: 20040301

REACTIONS (5)
  - BRAIN STEM SYNDROME [None]
  - DRUG INEFFECTIVE [None]
  - FEELING ABNORMAL [None]
  - VERTIGO [None]
  - VESTIBULAR NEURONITIS [None]
